FAERS Safety Report 8403437-9 (Version None)
Quarter: 2012Q2

REPORT INFORMATION
  Report Type: 
  Country: None (occurrence: None)
  Receive Date: 20120601
  Receipt Date: 20000817
  Transmission Date: 20120825
  Serious: Yes (Other)
  Sender: FDA-Public Use
  Company Number: US-ROCHE-72278

PATIENT
  Sex: Male
  Weight: 86.2 kg

DRUGS (2)
  1. LARIAM [Suspect]
     Indication: MALARIA PROPHYLAXIS
     Route: 048
     Dates: start: 19950504, end: 19950601
  2. LARIAM [Suspect]
     Route: 048

REACTIONS (79)
  - LOSS OF CONSCIOUSNESS [None]
  - BALANCE DISORDER [None]
  - MALARIA [None]
  - DYSPNOEA [None]
  - EAR PAIN [None]
  - PENILE ULCERATION [None]
  - BLADDER PAIN [None]
  - HERPES DERMATITIS [None]
  - MASS [None]
  - FLATULENCE [None]
  - TINNITUS [None]
  - VERTIGO [None]
  - FATIGUE [None]
  - AMOEBIASIS [None]
  - GAIT DISTURBANCE [None]
  - FLANK PAIN [None]
  - COUGH [None]
  - BLOOD POTASSIUM DECREASED [None]
  - PAIN [None]
  - ASPARTATE AMINOTRANSFERASE INCREASED [None]
  - BLOOD COPPER INCREASED [None]
  - BLOOD TEST ABNORMAL [None]
  - DEAFNESS [None]
  - MELANOCYTIC NAEVUS [None]
  - ABDOMINAL PAIN [None]
  - DISORIENTATION [None]
  - PHARYNGITIS STREPTOCOCCAL [None]
  - HYPERSOMNIA [None]
  - CYST [None]
  - LIGAMENT PAIN [None]
  - HEADACHE [None]
  - BLOOD LACTATE DEHYDROGENASE INCREASED [None]
  - ALANINE AMINOTRANSFERASE INCREASED [None]
  - CONFUSIONAL STATE [None]
  - SCHISTOSOMIASIS [None]
  - BLOOD MERCURY ABNORMAL [None]
  - WHITE BLOOD CELL COUNT DECREASED [None]
  - HYPERHIDROSIS [None]
  - THINKING ABNORMAL [None]
  - FEELING ABNORMAL [None]
  - ANXIETY [None]
  - NYSTAGMUS [None]
  - MALAISE [None]
  - RASH PUSTULAR [None]
  - COORDINATION ABNORMAL [None]
  - HYPERSENSITIVITY [None]
  - BLOOD TRIGLYCERIDES INCREASED [None]
  - CHILLS [None]
  - ASTHENOPIA [None]
  - DIZZINESS [None]
  - SINUS BRADYCARDIA [None]
  - LYMPHOCYTE COUNT INCREASED [None]
  - HYPOGLYCAEMIA [None]
  - ASTHENIA [None]
  - PYREXIA [None]
  - VISION BLURRED [None]
  - LYMPHADENITIS [None]
  - OROPHARYNGEAL PAIN [None]
  - HAEMORRHOIDS [None]
  - BLOOD PHOSPHORUS DECREASED [None]
  - MUSCLE SPASMS [None]
  - DIARRHOEA [None]
  - NECK PAIN [None]
  - PALPITATIONS [None]
  - DEPERSONALISATION [None]
  - CAMPBELL DE MORGAN SPOTS [None]
  - TREMOR [None]
  - ORAL HERPES [None]
  - MIGRAINE [None]
  - DYSPHAGIA [None]
  - VESTIBULAR DISORDER [None]
  - ABSCESS LIMB [None]
  - TENDON PAIN [None]
  - HALO VISION [None]
  - NEUTROPHIL COUNT DECREASED [None]
  - NAUSEA [None]
  - PARAESTHESIA [None]
  - AMNESIA [None]
  - GASTROINTESTINAL DISORDER [None]
